FAERS Safety Report 10084703 (Version 10)
Quarter: 2014Q4

REPORT INFORMATION
  Report Type: Spontaneous
  Country: US (occurrence: US)
  Receive Date: 20140417
  Receipt Date: 20141031
  Transmission Date: 20150528
  Serious: Yes (Hospitalization, Other)
  Sender: FDA-Public Use
  Company Number: US-GLAXOSMITHKLINE-A1069679A

PATIENT

DRUGS (24)
  1. RIOCIGUAT [Concomitant]
     Active Substance: RIOCIGUAT
  2. FLUCONAZOLE. [Concomitant]
     Active Substance: FLUCONAZOLE
  3. CALCIUM CARBONATE. [Concomitant]
     Active Substance: CALCIUM CARBONATE
  4. NORVASC [Concomitant]
     Active Substance: AMLODIPINE BESYLATE
  5. NORCO [Concomitant]
     Active Substance: ACETAMINOPHEN\HYDROCODONE BITARTRATE
  6. FLOLAN [Suspect]
     Active Substance: EPOPROSTENOL SODIUM
     Dates: start: 20140220
  7. VALCYTE [Concomitant]
     Active Substance: VALGANCICLOVIR HYDROCHLORIDE
  8. DOCUSATE [Concomitant]
     Active Substance: DOCUSATE
  9. FERROUS SULFATE [Concomitant]
     Active Substance: FERROUS SULFATE\FERROUS SULFATE, DRIED
  10. MYCOPHENOLATE [Concomitant]
     Active Substance: MYCOPHENOLIC ACID
  11. LASIX [Concomitant]
     Active Substance: FUROSEMIDE
  12. ALDACTONE [Concomitant]
     Active Substance: SPIRONOLACTONE
  13. OPSUMIT [Suspect]
     Active Substance: MACITENTAN
     Indication: PRODUCT USED FOR UNKNOWN INDICATION
     Route: 065
     Dates: start: 201407
  14. PROGRAF [Concomitant]
     Active Substance: TACROLIMUS\TACROLIMUS ANHYDROUS
  15. URSODIOL. [Concomitant]
     Active Substance: URSODIOL
  16. MULTIVITAMIN [Concomitant]
     Active Substance: VITAMINS
  17. FOLIC ACID. [Concomitant]
     Active Substance: FOLIC ACID
  18. ASPIRIN. [Concomitant]
     Active Substance: ASPIRIN
  19. ADCIRCA [Concomitant]
     Active Substance: TADALAFIL
  20. FLOLAN [Suspect]
     Active Substance: EPOPROSTENOL SODIUM
     Indication: COR PULMONALE CHRONIC
     Dosage: 19 NG/KG/MIN CONTINOUSLY, CONCENTRATION: 30,000 NG/ML, VIAL STRENGTH 1.5 MG14.3 NG/KG/MIN, 30,0[...]
     Route: 042
     Dates: start: 20140220
  21. PROTONIX [Concomitant]
     Active Substance: PANTOPRAZOLE SODIUM
  22. BACTRIM [Concomitant]
     Active Substance: SULFAMETHOXAZOLE\TRIMETHOPRIM
  23. VITAMIN D [Concomitant]
     Active Substance: CHOLECALCIFEROL
  24. MAGNESIUM OXIDE. [Concomitant]
     Active Substance: MAGNESIUM OXIDE

REACTIONS (24)
  - Liver transplant [Recovered/Resolved]
  - Haemorrhage [Recovered/Resolved]
  - Dyspnoea [Recovered/Resolved]
  - Colitis [Recovered/Resolved]
  - Procedural complication [Recovered/Resolved]
  - Transfusion [Recovered/Resolved]
  - Respiratory distress [Recovered/Resolved]
  - Dysphagia [Recovered/Resolved]
  - Diarrhoea [Recovered/Resolved]
  - Ascites [Recovered/Resolved]
  - Paracentesis [Recovered/Resolved]
  - Renal impairment [Recovered/Resolved]
  - Device related infection [Recovered/Resolved]
  - Joint swelling [Recovered/Resolved]
  - Oedema [Recovered/Resolved]
  - Hepatorenal syndrome [Recovered/Resolved]
  - Catheter placement [Recovered/Resolved]
  - Hospitalisation [Recovered/Resolved]
  - Mental impairment [Recovered/Resolved]
  - Acne [Recovered/Resolved]
  - Hepatomegaly [Recovered/Resolved]
  - Hypotension [Recovered/Resolved]
  - Abdominal distension [Recovered/Resolved]
  - Peripheral swelling [Recovered/Resolved]

NARRATIVE: CASE EVENT DATE: 201402
